FAERS Safety Report 26178012 (Version 1)
Quarter: 2025Q4

REPORT INFORMATION
  Report Type: Spontaneous
  Country: GB (occurrence: GB)
  Receive Date: 20251219
  Receipt Date: 20251219
  Transmission Date: 20260118
  Serious: Yes (Disabling)
  Sender: ACCORD
  Company Number: None

PATIENT
  Age: 76 Year
  Sex: Male
  Weight: 92 kg

DRUGS (1)
  1. ROSUVASTATIN CALCIUM [Suspect]
     Active Substance: ROSUVASTATIN CALCIUM
     Indication: Product used for unknown indication
     Dates: start: 2025

REACTIONS (1)
  - Oral pain [Not Recovered/Not Resolved]
